FAERS Safety Report 18264732 (Version 1)
Quarter: 2020Q3

REPORT INFORMATION
  Report Type: Spontaneous
  Country: US (occurrence: US)
  Receive Date: 20200914
  Receipt Date: 20200914
  Transmission Date: 20201103
  Serious: No
  Sender: FDA-Public Use
  Company Number: US-PFIZER INC-2020351910

PATIENT
  Age: 44 Year
  Sex: Female

DRUGS (5)
  1. BYSTOLIC [Concomitant]
     Active Substance: NEBIVOLOL HYDROCHLORIDE
  2. RAYOS [Concomitant]
     Active Substance: PREDNISONE
     Dosage: UNK
  3. ESTRADIOL / NORETHINDRONE ACETATE [Concomitant]
     Active Substance: ESTRADIOL\NORETHINDRONE ACETATE
  4. METHOTREXATE. [Concomitant]
     Active Substance: METHOTREXATE
  5. XELJANZ XR [Suspect]
     Active Substance: TOFACITINIB CITRATE
     Indication: RHEUMATOID ARTHRITIS
     Dosage: 11 MG, DAILY
     Route: 048
     Dates: start: 202005

REACTIONS (2)
  - Peripheral swelling [Unknown]
  - Condition aggravated [Unknown]

NARRATIVE: CASE EVENT DATE: 202008
